FAERS Safety Report 16784060 (Version 1)
Quarter: 2019Q3

REPORT INFORMATION
  Report Type: Spontaneous
  Country: US (occurrence: US)
  Receive Date: 20190909
  Receipt Date: 20190909
  Transmission Date: 20191005
  Serious: Yes (Hospitalization, Other)
  Sender: FDA-Public Use
  Company Number: US-SA-2019SA246136

PATIENT
  Age: 69 Year
  Sex: Female

DRUGS (4)
  1. NOVOLOG [Concomitant]
     Active Substance: INSULIN ASPART
     Route: 065
  2. TOUJEO [Suspect]
     Active Substance: INSULIN GLARGINE
     Dosage: 66 U, UNK
     Route: 065
  3. TOUJEO [Suspect]
     Active Substance: INSULIN GLARGINE
     Dosage: 20 UNITS IN THE MORNING AND 20 UNITS AT NIGHT
     Route: 065
  4. TOUJEO [Suspect]
     Active Substance: INSULIN GLARGINE
     Indication: TYPE 2 DIABETES MELLITUS
     Dosage: 90 U, UNK
     Route: 065

REACTIONS (12)
  - Coronary artery occlusion [Unknown]
  - Knee operation [Unknown]
  - Renal disorder [Unknown]
  - Thyroid disorder [Unknown]
  - Malaise [Unknown]
  - Urine oxalate [Unknown]
  - Inappropriate schedule of product administration [Unknown]
  - Feeling abnormal [Unknown]
  - Insulin resistance [Unknown]
  - Injection site pain [Unknown]
  - Chest discomfort [Unknown]
  - Liver disorder [Unknown]
